FAERS Safety Report 4884954-5 (Version None)
Quarter: 2005Q4

REPORT INFORMATION
  Report Type: 
  Country: None (occurrence: None)
  Receive Date: 20051201
  Receipt Date: 20050915
  Transmission Date: 20060501
  Serious: No
  Sender: FDA-Public Use
  Company Number: 2005PV002126

PATIENT
  Age: 46 Year
  Sex: Female
  Weight: 102.0593 kg

DRUGS (10)
  1. BYETTA [Suspect]
     Indication: DIABETES MELLITUS NON-INSULIN-DEPENDENT
     Dosage: 5 MCG; BID; SC
     Route: 058
     Dates: start: 20050829
  2. CELEXA [Concomitant]
  3. KEFLEX [Concomitant]
  4. PROTONIX [Concomitant]
  5. GLUCOVANCE [Concomitant]
  6. ZESTORETIC [Concomitant]
  7. NORVASC [Concomitant]
  8. AMITRIPTYLINE HCL [Concomitant]
  9. LIPITOR [Concomitant]
  10. DETROL LA [Concomitant]

REACTIONS (7)
  - AFFECT LABILITY [None]
  - CRYING [None]
  - DYSGEUSIA [None]
  - DYSPEPSIA [None]
  - HYPERHIDROSIS [None]
  - NAUSEA [None]
  - RETCHING [None]
